FAERS Safety Report 6464114-7 (Version None)
Quarter: 2009Q4

REPORT INFORMATION
  Report Type: 
  Country: None (occurrence: None)
  Receive Date: 20091130
  Receipt Date: 20091130
  Transmission Date: 20100525
  Serious: Yes (Other)
  Sender: FDA-Public Use
  Company Number: None

PATIENT
  Age: 33 Year
  Sex: Male
  Weight: 104.3273 kg

DRUGS (2)
  1. BUPROPION HCL [Suspect]
     Indication: SMOKING CESSATION THERAPY
     Dosage: 150MG 2 DAILY PO
     Route: 048
     Dates: start: 20091122, end: 20091125
  2. PROTONIX [Concomitant]

REACTIONS (2)
  - AGGRESSION [None]
  - HOSTILITY [None]
